FAERS Safety Report 4409784-X (Version None)
Quarter: 2004Q3

REPORT INFORMATION
  Report Type: 
  Country: None (occurrence: None)
  Receive Date: 20040723
  Receipt Date: 20040709
  Transmission Date: 20050211
  Serious: Yes (Hospitalization)
  Sender: FDA-Public Use
  Company Number: 2004-BP-05013BP

PATIENT
  Age: 77 Year
  Sex: Female

DRUGS (11)
  1. CATAPRES-TTS-3 [Suspect]
     Indication: HYPERTENSION
     Dosage: 0.1 MG (2.5 MG, 1 PATCH WEEKLY), TO
     Route: 061
     Dates: start: 20040311
  2. ZOCOR [Concomitant]
  3. AVAPRO [Concomitant]
  4. ATENOLOL [Concomitant]
  5. DIAZEPAM [Concomitant]
  6. ASPIRIN [Concomitant]
  7. NITROGLYCERIN [Concomitant]
  8. EVISTA [Concomitant]
  9. MECLIZINE [Concomitant]
  10. COLACE (DOCUSATE SODIUM) [Concomitant]
  11. IMDUR [Concomitant]

REACTIONS (8)
  - BLOOD PHOSPHORUS DECREASED [None]
  - BLOOD POTASSIUM DECREASED [None]
  - BLOOD SODIUM DECREASED [None]
  - CHEST PAIN [None]
  - CONDITION AGGRAVATED [None]
  - HAEMOGLOBIN DECREASED [None]
  - HYPERTENSION [None]
  - SKIN CANCER [None]
